FAERS Safety Report 10033001 (Version 4)
Quarter: 2014Q2

REPORT INFORMATION
  Report Type: Report from Study
  Country: GB (occurrence: GB)
  Receive Date: 20140324
  Receipt Date: 20140508
  Transmission Date: 20141212
  Serious: Yes (Life-Threatening, Hospitalization)
  Sender: FDA-Public Use
  Company Number: GB-CELGENEUS-167-21880-14023367

PATIENT
  Age: 69 Year
  Sex: Male
  Weight: 61 kg

DRUGS (11)
  1. REVLIMID [Suspect]
     Indication: PLASMA CELL MYELOMA
     Dosage: 25 MILLIGRAM
     Route: 048
     Dates: start: 20140205, end: 20140307
  2. DEXAMETHASONE [Suspect]
     Indication: PLASMA CELL MYELOMA
     Dosage: 40 MILLIGRAM
     Route: 048
     Dates: start: 20140205, end: 20140307
  3. DEXAMETHASONE [Suspect]
     Route: 065
     Dates: start: 20140325
  4. CYCLOPHOSPHAMIDE [Suspect]
     Indication: PLASMA CELL MYELOMA
     Dosage: 500 MILLIGRAM
     Route: 048
     Dates: start: 20140205, end: 20140307
  5. CYCLOPHOSPHAMIDE [Suspect]
     Route: 065
     Dates: start: 20140325
  6. CARFILZOMIB [Suspect]
     Indication: PLASMA CELL MYELOMA
     Route: 041
     Dates: start: 20140205, end: 20140213
  7. CARFILZOMIB [Suspect]
     Route: 041
     Dates: end: 20140307
  8. ALLOPURINOL [Concomitant]
     Indication: PRODUCT USED FOR UNKNOWN INDICATION
     Route: 065
  9. ZAVIMIR [Concomitant]
     Indication: PRODUCT USED FOR UNKNOWN INDICATION
     Route: 065
  10. COTRIMOXAZOLE [Concomitant]
     Indication: PRODUCT USED FOR UNKNOWN INDICATION
     Route: 065
  11. VELCADE [Concomitant]
     Indication: PLASMA CELL MYELOMA
     Route: 065
     Dates: start: 20140325

REACTIONS (4)
  - Histiocytosis haematophagic [Recovered/Resolved with Sequelae]
  - Stevens-Johnson syndrome [Recovered/Resolved with Sequelae]
  - Pyrexia [Not Recovered/Not Resolved]
  - Sepsis [Recovering/Resolving]
